FAERS Safety Report 6474451-8 (Version None)
Quarter: 2009Q4

REPORT INFORMATION
  Report Type: 
  Country: None (occurrence: None)
  Receive Date: 20091204
  Receipt Date: 20081229
  Transmission Date: 20100525
  Serious: No
  Sender: FDA-Public Use
  Company Number: US-AMGEN-KDL325878

PATIENT
  Sex: Female

DRUGS (8)
  1. ENBREL [Suspect]
     Indication: PSORIASIS
     Dates: start: 20081015
  2. COLCHICINE [Concomitant]
  3. ALLOPURINOL [Concomitant]
  4. VERAPAMIL [Concomitant]
  5. ZESTRIL [Concomitant]
  6. SYNTHROID [Concomitant]
  7. GLUCOTROL [Concomitant]
  8. HUMULIN R [Concomitant]

REACTIONS (2)
  - ABDOMINAL DISCOMFORT [None]
  - THERAPEUTIC RESPONSE DECREASED [None]
